FAERS Safety Report 4333306-5 (Version None)
Quarter: 2004Q2

REPORT INFORMATION
  Report Type: 
  Country: None (occurrence: None)
  Receive Date: 20040401
  Receipt Date: 20040325
  Transmission Date: 20050107
  Serious: Yes (Other)
  Sender: FDA-Public Use
  Company Number: 2004-03-1836

PATIENT
  Age: 52 Year
  Sex: Male
  Weight: 89.3586 kg

DRUGS (4)
  1. PEG-INTRON [Suspect]
     Indication: HEPATITIS C
     Dosage: 150 MCG QW SUBCUTANEOUS
     Route: 058
     Dates: start: 20030526, end: 20040320
  2. REBETOL [Suspect]
     Indication: HEPATITIS C
     Dosage: 1200 MG QD ORAL
     Route: 048
     Dates: start: 20030526, end: 20040320
  3. ACIPHEX [Concomitant]
  4. EPOGEN [Concomitant]

REACTIONS (10)
  - ANOREXIA [None]
  - ATELECTASIS [None]
  - COUGH [None]
  - DEPRESSION [None]
  - DYSPNOEA EXERTIONAL [None]
  - HAEMATOCRIT DECREASED [None]
  - NAUSEA [None]
  - PULMONARY FIBROSIS [None]
  - REFUSAL OF TREATMENT BY PATIENT [None]
  - TREATMENT NONCOMPLIANCE [None]
